FAERS Safety Report 14354440 (Version 1)
Quarter: 2018Q1

REPORT INFORMATION
  Report Type: Report from Study
  Country: US (occurrence: US)
  Receive Date: 20180105
  Receipt Date: 20180105
  Transmission Date: 20180509
  Serious: Yes (Other)
  Sender: FDA-Public Use
  Company Number: US-BRISTOL-MYERS SQUIBB COMPANY-BMS-2017-119175

PATIENT
  Sex: Female
  Weight: 45.6 kg

DRUGS (3)
  1. ENTINOSTAT [Suspect]
     Active Substance: ENTINOSTAT
     Indication: VULVAL CANCER
     Dosage: 5 MG, UNK
     Route: 048
     Dates: start: 20170915
  2. NIVOLUMAB [Suspect]
     Active Substance: NIVOLUMAB
     Indication: VULVAL CANCER
     Dosage: 3 MG/KG (137.4 MG)
     Route: 042
     Dates: start: 20170929
  3. IPILIMUMAB [Suspect]
     Active Substance: IPILIMUMAB
     Indication: VULVAL CANCER
     Dosage: 1 MG/KG (45.8 MG)
     Route: 042
     Dates: start: 20170929

REACTIONS (1)
  - Anaphylactic reaction [Recovering/Resolving]

NARRATIVE: CASE EVENT DATE: 20171010
